FAERS Safety Report 6790331-2 (Version None)
Quarter: 2010Q2

REPORT INFORMATION
  Report Type: 
  Country: None (occurrence: None)
  Receive Date: 20100624
  Receipt Date: 20100620
  Transmission Date: 20101027
  Serious: Yes (Other)
  Sender: FDA-Public Use
  Company Number: CH-ALLERGAN-1005941US

PATIENT
  Sex: Female

DRUGS (2)
  1. VISTABEL [Suspect]
     Indication: HYPERHIDROSIS
     Dosage: UNK
     Dates: start: 20090224, end: 20090224
  2. REMICADE [Suspect]
     Indication: CROHN'S DISEASE
     Dosage: UNK
     Route: 041
     Dates: start: 20090220, end: 20090220

REACTIONS (1)
  - ANAPHYLACTIC SHOCK [None]
